FAERS Safety Report 9358672 (Version 1)
Quarter: 2013Q2

REPORT INFORMATION
  Report Type: Spontaneous
  Country: US (occurrence: US)
  Receive Date: 20130620
  Receipt Date: 20130620
  Transmission Date: 20140414
  Serious: Yes (Hospitalization)
  Sender: FDA-Public Use
  Company Number: US-US-EMD SERONO, INC.-7072013

PATIENT
  Age: 43 Year
  Sex: Female
  Weight: 66 kg

DRUGS (6)
  1. REBIF [Suspect]
     Indication: MULTIPLE SCLEROSIS
     Dates: start: 20050228, end: 20110608
  2. AMPYRA [Concomitant]
     Indication: MULTIPLE SCLEROSIS
     Route: 048
     Dates: start: 20101025
  3. PROVIGIL [Concomitant]
     Indication: FATIGUE
     Route: 048
     Dates: start: 20070321
  4. PROZAC [Concomitant]
     Indication: DEPRESSION
     Route: 048
     Dates: start: 20110601
  5. PROZAC [Concomitant]
     Indication: HEADACHE
  6. AMITRIPTYLINE [Concomitant]
     Indication: HEADACHE
     Route: 048
     Dates: start: 20071217

REACTIONS (1)
  - Multiple sclerosis relapse [Recovered/Resolved]
